FAERS Safety Report 20186429 (Version 2)
Quarter: 2022Q1

REPORT INFORMATION
  Report Type: Spontaneous
  Country: BR (occurrence: BR)
  Receive Date: 20211215
  Receipt Date: 20220106
  Transmission Date: 20220423
  Serious: Yes (Other)
  Sender: FDA-Public Use
  Company Number: BR-CELLTRION INC.-2021BR016090

PATIENT

DRUGS (3)
  1. INFLIXIMAB [Suspect]
     Active Substance: INFLIXIMAB
     Indication: Behcet^s syndrome
     Dosage: EVERY 2 MONTHS VIA ENDOVENOUS ROUTE, STARTED 4 YEARS AGO (2 AMPOULES 10MG/ML EVERY 8 WEEKS EACH)
     Route: 042
     Dates: start: 20211019
  2. INFLIXIMAB [Suspect]
     Active Substance: INFLIXIMAB
     Dosage: 2 AMPOULS WITH 10MG/ML EVERY 8 WEEKS, VIA ENDOVENOUS
     Dates: start: 202112
  3. LOSARTAN [Concomitant]
     Active Substance: LOSARTAN
     Indication: Hypertension
     Dosage: 50 MG, TWICE A DAY ABOUT 6 YEARS
     Route: 048

REACTIONS (5)
  - Symptom recurrence [Unknown]
  - Behcet^s syndrome [Unknown]
  - Off label use [Unknown]
  - Drug effective for unapproved indication [Unknown]
  - Diarrhoea [Recovered/Resolved]
